FAERS Safety Report 21922566 (Version 3)
Quarter: 2023Q4

REPORT INFORMATION
  Report Type: Report from Study
  Country: US (occurrence: US)
  Receive Date: 20230128
  Receipt Date: 20231027
  Transmission Date: 20240109
  Serious: Yes (Hospitalization, Other)
  Sender: FDA-Public Use
  Company Number: US-ABBVIE-4263004

PATIENT
  Sex: Female
  Weight: 72 kg

DRUGS (5)
  1. HUMIRA [Suspect]
     Active Substance: ADALIMUMAB
     Indication: Rheumatoid arthritis
     Dosage: CITRATE FREE?FORM STRENGTH: 40 MILLIGRAM
     Route: 058
  2. HUMIRA [Suspect]
     Active Substance: ADALIMUMAB
     Dosage: CITRATE FREE?FORM STRENGTH: 40 MILLIGRAM
     Route: 058
     Dates: start: 20181116
  3. FOLIC ACID [Concomitant]
     Active Substance: FOLIC ACID
     Indication: Vitamin supplementation
  4. CLONAZEPAM [Concomitant]
     Active Substance: CLONAZEPAM
     Indication: Anxiety
     Dosage: 2 MG ONCE A NIGHT
  5. METHOTREXATE [Concomitant]
     Active Substance: METHOTREXATE
     Indication: Product used for unknown indication
     Dosage: TIME INTERVAL: 0.16666667 WEEKS
     Route: 065

REACTIONS (24)
  - Suicide attempt [Recovered/Resolved]
  - Nervous system disorder [Not Recovered/Not Resolved]
  - Solar lentigo [Unknown]
  - Depression [Unknown]
  - Stress [Not Recovered/Not Resolved]
  - COVID-19 [Recovered/Resolved]
  - Onychoclasis [Recovered/Resolved]
  - Weight loss poor [Not Recovered/Not Resolved]
  - Post-traumatic stress disorder [Not Recovered/Not Resolved]
  - Breast pain [Not Recovered/Not Resolved]
  - Breast mass [Not Recovered/Not Resolved]
  - Nasopharyngitis [Recovered/Resolved]
  - Weight increased [Recovered/Resolved]
  - Skin discolouration [Unknown]
  - Vomiting [Recovered/Resolved]
  - Arthritis [Unknown]
  - Muscle tightness [Unknown]
  - Joint dislocation [Not Recovered/Not Resolved]
  - Blood pressure increased [Unknown]
  - Weight decreased [Unknown]
  - Tremor [Unknown]
  - Muscle fatigue [Unknown]
  - Nail disorder [Recovered/Resolved]
  - Weight increased [Unknown]

NARRATIVE: CASE EVENT DATE: 20210101
